FAERS Safety Report 9400431 (Version 1)
Quarter: 2013Q3

REPORT INFORMATION
  Report Type: Spontaneous
  Country: US (occurrence: None)
  Receive Date: 20130712
  Receipt Date: 20130712
  Transmission Date: 20140515
  Serious: No
  Sender: FDA-Public Use
  Company Number: None

PATIENT
  Sex: Male

DRUGS (2)
  1. CIPRO [Suspect]
     Indication: PROSTATE INFECTION
     Route: 048
     Dates: start: 200909, end: 200910
  2. CIPRO [Suspect]
     Indication: DIVERTICULITIS
     Route: 048
     Dates: start: 200909, end: 200910

REACTIONS (7)
  - Neuralgia [None]
  - Tinnitus [None]
  - Tendon disorder [None]
  - Asthenia [None]
  - Malaise [None]
  - Pain [None]
  - Tendon injury [None]
